FAERS Safety Report 16335060 (Version 1)
Quarter: 2019Q2

REPORT INFORMATION
  Report Type: Spontaneous
  Country: GB (occurrence: GB)
  Receive Date: 20190520
  Receipt Date: 20190520
  Transmission Date: 20190711
  Serious: Yes (Other)
  Sender: FDA-Public Use
  Company Number: GB-CONCORDIA PHARMACEUTICALS INC.-E2B_00019804

PATIENT
  Age: 72 Year
  Sex: Female
  Weight: 69 kg

DRUGS (7)
  1. REFRESH CELLUVISC [Concomitant]
     Active Substance: CARBOXYMETHYLCELLULOSE SODIUM
     Indication: DRY EYE
     Dosage: BOTH EYES
     Route: 047
     Dates: start: 20190405
  2. INSULATARD PORCINE [Concomitant]
     Dosage: 20 UI MORNING AND 16 UI EVENING
     Dates: start: 20190130, end: 20190227
  3. METFORMIN [Concomitant]
     Active Substance: METFORMIN HYDROCHLORIDE
     Dates: start: 20180516
  4. PREDNISOLONE SODIUM PHOSPHATE. [Suspect]
     Active Substance: PREDNISOLONE SODIUM PHOSPHATE
     Dates: start: 20170524
  5. ATORVASTATIN [Concomitant]
     Active Substance: ATORVASTATIN
     Indication: HYPERCHOLESTEROLAEMIA
     Dosage: AT NIGHT
     Dates: start: 20180123
  6. FLUOROMETHOLONE. [Concomitant]
     Active Substance: FLUOROMETHOLONE
     Dosage: 1-2 TIMES A DAY IN BOTH EYES
     Route: 047
     Dates: start: 20180516
  7. CAPASAL [Concomitant]
     Dosage: USE DAILY
     Dates: start: 20180516

REACTIONS (2)
  - Pain [Recovered/Resolved]
  - Rash [Unknown]
